FAERS Safety Report 18763179 (Version 2)
Quarter: 2022Q2

REPORT INFORMATION
  Report Type: Spontaneous
  Country: US (occurrence: US)
  Receive Date: 20210120
  Receipt Date: 20220504
  Transmission Date: 20220721
  Serious: No
  Sender: FDA-Public Use
  Company Number: US-PFIZER INC-2019209526

PATIENT
  Age: 68 Year
  Sex: Female

DRUGS (3)
  1. LYRICA [Suspect]
     Active Substance: PREGABALIN
     Indication: Neck pain
     Dosage: 150 MG, 2X/DAY
     Route: 048
     Dates: start: 20190513
  2. LYRICA [Suspect]
     Active Substance: PREGABALIN
     Indication: Fibromyalgia
  3. LYRICA [Suspect]
     Active Substance: PREGABALIN
     Indication: Back disorder

REACTIONS (1)
  - Malaise [Unknown]
